FAERS Safety Report 12079728 (Version 5)
Quarter: 2016Q2

REPORT INFORMATION
  Report Type: Report from Study
  Country: AR (occurrence: AR)
  Receive Date: 20160216
  Receipt Date: 20160426
  Transmission Date: 20160815
  Serious: Yes (Hospitalization)
  Sender: FDA-Public Use
  Company Number: AR-BIOGEN-2016BI00185917

PATIENT
  Age: 53 Year
  Sex: Male

DRUGS (2)
  1. VASELINE PO [Concomitant]
     Indication: CHANGE OF BOWEL HABIT
     Route: 048
  2. TYSABRI [Suspect]
     Active Substance: NATALIZUMAB
     Indication: MULTIPLE SCLEROSIS
     Dosage: INFUSED OVER 1 HOUR
     Route: 042
     Dates: start: 2013, end: 20160126

REACTIONS (3)
  - Nuclear magnetic resonance imaging abnormal [Not Recovered/Not Resolved]
  - Change of bowel habit [Recovered/Resolved]
  - Pneumonia lipoid [Not Recovered/Not Resolved]

NARRATIVE: CASE EVENT DATE: 2015
